FAERS Safety Report 7789502-8 (Version None)
Quarter: 2011Q3

REPORT INFORMATION
  Report Type: 
  Country: None (occurrence: None)
  Receive Date: 20110930
  Receipt Date: 20101129
  Transmission Date: 20111222
  Serious: No
  Sender: FDA-Public Use
  Company Number: US-ASTRAZENECA-2010SE56808

PATIENT
  Sex: Female

DRUGS (1)
  1. ARIMIDEX [Suspect]
     Route: 048
     Dates: start: 20061201

REACTIONS (8)
  - LIMB DISCOMFORT [None]
  - MALAISE [None]
  - SINUSITIS [None]
  - MUSCLE SPASMS [None]
  - RHINORRHOEA [None]
  - MUSCULOSKELETAL PAIN [None]
  - MUSCULOSKELETAL DISCOMFORT [None]
  - HAIR GROWTH ABNORMAL [None]
